FAERS Safety Report 22315620 (Version 2)
Quarter: 2023Q2

REPORT INFORMATION
  Report Type: Spontaneous
  Country: JP (occurrence: None)
  Receive Date: 20230512
  Receipt Date: 20230615
  Transmission Date: 20230722
  Serious: Yes (Other)
  Sender: FDA-Public Use
  Company Number: 2023A108696

PATIENT
  Sex: Male

DRUGS (9)
  1. DAPAGLIFLOZIN [Suspect]
     Active Substance: DAPAGLIFLOZIN
     Indication: Type 2 diabetes mellitus
     Dosage: DOSE UNKNOWN
     Route: 048
  2. SITAGLIPTIN PHOSPHATE [Concomitant]
     Active Substance: SITAGLIPTIN PHOSPHATE
     Dosage: DOSE UNKNOWN
     Route: 048
  3. GLIMEPIRIDE [Concomitant]
     Active Substance: GLIMEPIRIDE
     Dosage: DOSE UNKNOWN
     Route: 048
  4. DRIED FERROUS SULFATE [Concomitant]
     Dosage: DOSE UNKNOWN
     Route: 048
  5. METFORMIN HYDROCHLORIDE [Concomitant]
     Active Substance: METFORMIN HYDROCHLORIDE
     Dosage: DOSE UNKNOWN
     Route: 048
  6. MAGNESIUM OXIDE [Concomitant]
     Active Substance: MAGNESIUM OXIDE
     Dosage: DOSE UNKNOWN
     Route: 048
  7. CORONAVIRUS MODIFIED URIDINE RNA VACCINE(SARS-COV-2) [Concomitant]
     Dosage: DOSE UNKNOWN
     Route: 065
  8. TIRABRUTINIB HYDROCHLORIDE [Concomitant]
     Active Substance: TIRABRUTINIB HYDROCHLORIDE
     Route: 065
  9. TIRABRUTINIB HYDROCHLORIDE [Concomitant]
     Active Substance: TIRABRUTINIB HYDROCHLORIDE

REACTIONS (2)
  - Waldenstrom^s macroglobulinaemia [Unknown]
  - Cardiomegaly [Unknown]

NARRATIVE: CASE EVENT DATE: 20220101
